FAERS Safety Report 7798385-1 (Version None)
Quarter: 2011Q4

REPORT INFORMATION
  Report Type: 
  Country: None (occurrence: None)
  Receive Date: 20111005
  Receipt Date: 20110930
  Transmission Date: 20120403
  Serious: Yes (Other)
  Sender: FDA-Public Use
  Company Number: US-PFIZER INC-2011234279

PATIENT
  Sex: Female
  Weight: 49.887 kg

DRUGS (2)
  1. DETROL LA [Suspect]
     Indication: BLADDER DISORDER
     Dosage: 8 MG, 1X/DAY
     Route: 048
     Dates: start: 20110901, end: 20110901
  2. TOVIAZ [Suspect]
     Indication: BLADDER DISORDER
     Dosage: 4 MG, 1X/DAY
     Route: 048
     Dates: start: 20100101, end: 20110901

REACTIONS (3)
  - CYSTITIS [None]
  - DIZZINESS [None]
  - CHEST DISCOMFORT [None]
